FAERS Safety Report 24443945 (Version 2)
Quarter: 2024Q4

REPORT INFORMATION
  Report Type: Report from Study
  Country: US (occurrence: US)
  Receive Date: 20241016
  Receipt Date: 20241017
  Transmission Date: 20250115
  Serious: No
  Sender: ROCHE
  Company Number: US-ROCHE-2488723

PATIENT
  Age: 72 Year
  Sex: Male

DRUGS (8)
  1. RITUXAN [Suspect]
     Active Substance: RITUXIMAB
     Indication: Granulomatosis with polyangiitis
     Dosage: 800MG FOR DAY 8 THEN 700MG FOR 1 YEAR?(DATE OF TREATMENT 25/JUL/2019, 01/AUG/2019, 08/AUG/2019 AND 1
     Route: 042
  2. RITUXAN [Suspect]
     Active Substance: RITUXIMAB
     Dosage: 2 (500MG VIALS) 1000MG DAY 1 AND DAY 15 EVERY 6 MONTHS?DATE OF SERVICE: 13/JAN/2023
     Route: 042
  3. AMLODIPINE [Concomitant]
     Active Substance: AMLODIPINE BESYLATE
     Route: 048
  4. LABETALOL [Concomitant]
     Active Substance: LABETALOL
     Route: 048
  5. PREDNISONE [Concomitant]
     Active Substance: PREDNISONE
     Route: 048
  6. RANITIDINE [Concomitant]
     Active Substance: RANITIDINE
     Route: 048
  7. SULFAMETHOXAZOLE [Concomitant]
     Active Substance: SULFAMETHOXAZOLE
     Route: 048
  8. TRIMIPRAMINE [Concomitant]
     Active Substance: TRIMIPRAMINE
     Route: 048

REACTIONS (3)
  - Off label use [Unknown]
  - No adverse event [Unknown]
  - Off label use [Unknown]
